FAERS Safety Report 4983234-7 (Version None)
Quarter: 2006Q2

REPORT INFORMATION
  Report Type: 
  Country: None (occurrence: None)
  Receive Date: 20060419
  Receipt Date: 20060406
  Transmission Date: 20061013
  Serious: Yes (Death)
  Sender: FDA-Public Use
  Company Number: IN200604000881

PATIENT
  Age: 36 Year
  Sex: Male

DRUGS (3)
  1. GEMCITABINE HYDROCHLORIDE [Suspect]
     Indication: LUNG NEOPLASM MALIGNANT
     Dosage: 1.8 OTHER, INTRAVENOUS
     Route: 042
     Dates: start: 20060405
  2. GEMCITABINE HYDROCHLORIDE [Suspect]
  3. CARBOPLATIN [Concomitant]

REACTIONS (1)
  - MYOCARDIAL INFARCTION [None]
